FAERS Safety Report 20774353 (Version 1)
Quarter: 2022Q2

REPORT INFORMATION
  Report Type: Spontaneous
  Country: US (occurrence: None)
  Receive Date: 20220430
  Receipt Date: 20220430
  Transmission Date: 20220720
  Serious: No
  Sender: FDA-Public Use
  Company Number: None

PATIENT
  Age: 78 Year
  Sex: Male
  Weight: 58.5 kg

DRUGS (3)
  1. MYRBETRIQ [Suspect]
     Active Substance: MIRABEGRON
     Indication: Hypertonic bladder
     Dosage: OTHER QUANTITY : 1 TABLET(S);?FREQUENCY : DAILY;?
     Route: 048
     Dates: start: 20220323, end: 20220422
  2. CELEBREX [Concomitant]
     Active Substance: CELECOXIB
  3. Iron /Calcium supplements [Concomitant]

REACTIONS (3)
  - Gastrointestinal pain [None]
  - Gastrointestinal pain [None]
  - Abdominal pain upper [None]

NARRATIVE: CASE EVENT DATE: 20220424
